FAERS Safety Report 23138850 (Version 3)
Quarter: 2023Q4

REPORT INFORMATION
  Report Type: Spontaneous
  Country: US (occurrence: US)
  Receive Date: 20231102
  Receipt Date: 20231207
  Transmission Date: 20240110
  Serious: Yes (Other)
  Sender: FDA-Public Use
  Company Number: US-BRAINTREE LABORATORIES, INC.-2023BTE00740

PATIENT
  Age: 51 Year
  Sex: Female

DRUGS (2)
  1. SUTAB [Suspect]
     Active Substance: MAGNESIUM SULFATE\POTASSIUM CHLORIDE\SODIUM SULFATE
     Indication: Colonoscopy
     Dosage: 1 X 14 TABLETS, 1X
     Dates: start: 20231018, end: 20231019
  2. VITAMINS NOS [Concomitant]
     Active Substance: VITAMINS

REACTIONS (8)
  - Loss of consciousness [Recovered/Resolved]
  - Malaise [Recovering/Resolving]
  - Dizziness [Recovering/Resolving]
  - Feeling abnormal [Recovering/Resolving]
  - Headache [Recovering/Resolving]
  - Vomiting [Recovering/Resolving]
  - Nausea [Recovering/Resolving]
  - Wrong technique in product usage process [Recovered/Resolved]

NARRATIVE: CASE EVENT DATE: 20231018
